FAERS Safety Report 15497124 (Version 6)
Quarter: 2020Q2

REPORT INFORMATION
  Report Type: Report from Study
  Country: CA (occurrence: CA)
  Receive Date: 20181015
  Receipt Date: 20200529
  Transmission Date: 20200713
  Serious: No
  Sender: FDA-Public Use
  Company Number: CA-ROCHE-2176796

PATIENT
  Age: 43 Year
  Sex: Male

DRUGS (4)
  1. OCREVUS [Suspect]
     Active Substance: OCRELIZUMAB
     Indication: RELAPSING-REMITTING MULTIPLE SCLEROSIS
     Dosage: 600MG EVERY 6 MONTH
     Route: 042
     Dates: start: 20170701
  2. FAMPYRA [Concomitant]
     Active Substance: DALFAMPRIDINE
     Indication: PRODUCT USED FOR UNKNOWN INDICATION
     Route: 048
     Dates: start: 2017
  3. CITALOPRAM [Concomitant]
     Active Substance: CITALOPRAM HYDROBROMIDE
     Indication: DEPRESSION
     Route: 048
     Dates: start: 2015
  4. MODAFINIL. [Concomitant]
     Active Substance: MODAFINIL
     Indication: FATIGUE
     Route: 065
     Dates: start: 2012

REACTIONS (7)
  - Oropharyngeal pain [Recovered/Resolved]
  - Temperature intolerance [Unknown]
  - Poor quality sleep [Unknown]
  - Fatigue [Unknown]
  - Influenza [Recovered/Resolved]
  - Cough [Unknown]
  - Oral herpes [Unknown]

NARRATIVE: CASE EVENT DATE: 201808
